FAERS Safety Report 9019695 (Version 1)
Quarter: 2013Q1

REPORT INFORMATION
  Report Type: Spontaneous
  Country: US (occurrence: US)
  Receive Date: 20130118
  Receipt Date: 20130118
  Transmission Date: 20140127
  Serious: Yes (Hospitalization, Other)
  Sender: FDA-Public Use
  Company Number: PHEH2012US023338

PATIENT
  Age: 53 None
  Sex: Male
  Weight: 77.98 kg

DRUGS (1)
  1. GILENYA [Suspect]
     Indication: MULTIPLE SCLEROSIS
     Dosage: 0.5 MG, QD
     Route: 048
     Dates: start: 20121114

REACTIONS (4)
  - Heart rate decreased [Recovered/Resolved]
  - Tooth abscess [Unknown]
  - Lip disorder [Not Recovered/Not Resolved]
  - Ephelides [Not Recovered/Not Resolved]
